FAERS Safety Report 8398124-X (Version None)
Quarter: 2012Q1

REPORT INFORMATION
  Report Type: 
  Country: None (occurrence: None)
  Receive Date: 20120323
  Receipt Date: 20110309
  Transmission Date: 20120608
  Serious: Yes (Hospitalization)
  Sender: FDA-Public Use
  Company Number: 163-21880-11011351

PATIENT
  Age: 85 Year
  Sex: Male

DRUGS (3)
  1. REVLIMID [Suspect]
     Indication: MULTIPLE MYELOMA
     Dosage: 25;15;5 MG, 1 IN 1 D, PO
     Route: 048
     Dates: start: 20080508, end: 20091224
  2. REVLIMID [Suspect]
     Indication: MULTIPLE MYELOMA
     Dosage: 25;15;5 MG, 1 IN 1 D, PO
     Route: 048
     Dates: start: 20070601
  3. REVLIMID [Suspect]
     Indication: MULTIPLE MYELOMA
     Dosage: 25;15;5 MG, 1 IN 1 D, PO
     Route: 048
     Dates: start: 20110113

REACTIONS (4)
  - FATIGUE [None]
  - MULTIPLE MYELOMA [None]
  - RASH PAPULAR [None]
  - DIARRHOEA [None]
